FAERS Safety Report 15110918 (Version 2)
Quarter: 2018Q4

REPORT INFORMATION
  Report Type: Spontaneous
  Country: CA (occurrence: CA)
  Receive Date: 20180705
  Receipt Date: 20181024
  Transmission Date: 20190204
  Serious: Yes (Hospitalization, Other)
  Sender: FDA-Public Use
  Company Number: CA-SHIRE-CA201823470

PATIENT

DRUGS (3)
  1. GAMMAGARD LIQUID [Suspect]
     Active Substance: HUMAN IMMUNOGLOBULIN G
     Dosage: 50 G,  2 TREATMENTS Q 6 WEEKS, X 3 DAYS
     Route: 042
     Dates: start: 20180619, end: 20180621
  2. GAMMAGARD LIQUID [Suspect]
     Active Substance: HUMAN IMMUNOGLOBULIN G
     Dosage: 50 G,  2 TREATMENTS Q 6 WEEKS, X 3 DAYS
     Route: 042
     Dates: start: 20180619, end: 20180621
  3. GAMMAGARD LIQUID [Suspect]
     Active Substance: HUMAN IMMUNOGLOBULIN G
     Indication: MYASTHENIA GRAVIS
     Dosage: 50 G, 2 TREATMENTS Q 6 WEEKS, X 3 DAYS
     Route: 042
     Dates: start: 20180619, end: 20180621

REACTIONS (5)
  - Headache [Recovered/Resolved]
  - Malaise [Recovered/Resolved]
  - Vision blurred [Recovered/Resolved]
  - Coombs direct test positive [Recovered/Resolved]
  - Anti A antibody positive [Recovered/Resolved]

NARRATIVE: CASE EVENT DATE: 20180619
